FAERS Safety Report 5025040-3 (Version None)
Quarter: 2006Q2

REPORT INFORMATION
  Report Type: 
  Country: None (occurrence: None)
  Receive Date: 20060608
  Receipt Date: 20060608
  Transmission Date: 20061013
  Serious: Yes (Life-Threatening, Other)
  Sender: FDA-Public Use
  Company Number: None

PATIENT
  Age: 65 Year
  Sex: Male
  Weight: 72.1219 kg

DRUGS (4)
  1. CIMETIDINE [Suspect]
     Indication: GASTROOESOPHAGEAL REFLUX DISEASE
     Dosage: USED 200 MG ONCE AT NIGHT MOUTH
     Route: 048
     Dates: start: 20060413, end: 20060418
  2. NIZATIDINE (AXID) [Concomitant]
  3. RANITIDINE [Concomitant]
  4. FAMOTIDINE (GENERIC PEPCID AC) [Concomitant]

REACTIONS (13)
  - CHEST DISCOMFORT [None]
  - DIARRHOEA [None]
  - FEELING ABNORMAL [None]
  - FEELING COLD [None]
  - HALLUCINATION [None]
  - HEADACHE [None]
  - HEART RATE INCREASED [None]
  - MIDDLE INSOMNIA [None]
  - MUSCLE SPASMS [None]
  - MYALGIA [None]
  - POISONING [None]
  - SOMNOLENCE [None]
  - TREMOR [None]
